FAERS Safety Report 5127166-2 (Version None)
Quarter: 2006Q4

REPORT INFORMATION
  Report Type: 
  Country: None (occurrence: None)
  Receive Date: 20061013
  Receipt Date: 20061012
  Transmission Date: 20070319
  Serious: Yes (Hospitalization, Other)
  Sender: FDA-Public Use
  Company Number: US-BRISTOL-MYERS SQUIBB COMPANY-13539192

PATIENT
  Age: 75 Year
  Sex: Male
  Weight: 68 kg

DRUGS (5)
  1. COUMADIN [Suspect]
     Indication: HEART RATE IRREGULAR
     Dates: start: 20010101
  2. LISINOPRIL [Concomitant]
  3. VERAPAMIL [Concomitant]
  4. DOXAZOSIN [Concomitant]
  5. PROSCAR [Concomitant]
     Dates: start: 20040101

REACTIONS (3)
  - FALL [None]
  - HAEMORRHAGE [None]
  - INTERNATIONAL NORMALISED RATIO INCREASED [None]
